FAERS Safety Report 8817695 (Version 4)
Quarter: 2016Q1

REPORT INFORMATION
  Report Type: Spontaneous
  Country: US (occurrence: US)
  Receive Date: 20121001
  Receipt Date: 20160219
  Transmission Date: 20160526
  Serious: Yes (Hospitalization, Other)
  Sender: FDA-Public Use
  Company Number: US-PFIZER INC-2012241410

PATIENT
  Age: 72 Year
  Sex: Female

DRUGS (16)
  1. WARFARIN SODIUM. [Concomitant]
     Active Substance: WARFARIN SODIUM
     Dosage: 8 MG, DAILY (2 (TWO) TABLET DAILY)
     Dates: start: 20150514
  2. FUROSEMIDE. [Concomitant]
     Active Substance: FUROSEMIDE
     Dosage: 20 MG, 1X/DAY
     Dates: start: 20150519
  3. METFORMIN HCL [Concomitant]
     Active Substance: METFORMIN HYDROCHLORIDE
     Dosage: 500 MG, 2X/DAY
     Dates: start: 20150909
  4. GLYBURIDE. [Concomitant]
     Active Substance: GLYBURIDE
     Dosage: 7.5 MG, DAILY (5 MG IN THE MORNING AND 2.5 IN THE EVENING)
     Dates: start: 20150504
  5. TEGRETOL [Concomitant]
     Active Substance: CARBAMAZEPINE
     Indication: SEIZURE
     Dosage: 200 MG, 3X/DAY
     Dates: start: 20151110
  6. WARFARIN SODIUM. [Concomitant]
     Active Substance: WARFARIN SODIUM
     Dosage: 5 MG, 1X/DAY
     Dates: start: 20150708
  7. ISOSORBIDE MONONITRATE. [Concomitant]
     Active Substance: ISOSORBIDE MONONITRATE
     Dosage: 60 MG, 1X/DAY
     Dates: start: 20150515
  8. ALBUTEROL. [Concomitant]
     Active Substance: ALBUTEROL
     Indication: BRONCHITIS
     Dosage: UNK, EVERY 4 HRS (2 (TWO) PUFF, PUFF EVERY FOUR HOURS)
     Dates: start: 20140616
  9. KLOR-CON [Concomitant]
     Active Substance: POTASSIUM CHLORIDE
     Dosage: 20 MEQ, DAILY
     Dates: start: 20150430
  10. LYRICA [Suspect]
     Active Substance: PREGABALIN
     Dosage: 225 MG, 2X/DAY
     Route: 048
     Dates: start: 20150810
  11. LEVOTHYROXINE SODIUM. [Concomitant]
     Active Substance: LEVOTHYROXINE SODIUM
     Dosage: 50 UG, DAILY (25 MCG, 2 (TWO) TABLET, TABLET DAILY)
     Dates: start: 20150708
  12. ALBUTEROL. [Concomitant]
     Active Substance: ALBUTEROL
     Dosage: UNK, AS NEEDED ((TWO) PUFF, PUFF EVERY FOUR HOURS)
     Dates: start: 20140616
  13. ATORVASTATIN CALCIUM. [Concomitant]
     Active Substance: ATORVASTATIN CALCIUM
     Indication: HYPERLIPIDAEMIA
     Dosage: 10 MG, 1X/DAY
     Dates: start: 20150607
  14. LISINOPRIL. [Concomitant]
     Active Substance: LISINOPRIL
     Dosage: 40 MG, DAILY (2 TABLET DAILY)
     Dates: start: 20151230
  15. LYRICA [Suspect]
     Active Substance: PREGABALIN
     Dosage: UNK
  16. NORVASC [Concomitant]
     Active Substance: AMLODIPINE BESYLATE
     Dosage: 10 MG, 1X/DAY
     Dates: start: 20151230

REACTIONS (3)
  - Sepsis [Unknown]
  - Cholelithiasis [Unknown]
  - Swelling [Unknown]

NARRATIVE: CASE EVENT DATE: 20120916
